FAERS Safety Report 19815932 (Version 2)
Quarter: 2021Q3

REPORT INFORMATION
  Report Type: Spontaneous
  Country: US (occurrence: US)
  Receive Date: 20210909
  Receipt Date: 20210916
  Transmission Date: 20211014
  Serious: Yes (Other)
  Sender: FDA-Public Use
  Company Number: US-TEVA-2021-US-1950025

PATIENT
  Age: 48 Year
  Sex: Male

DRUGS (24)
  1. HYDROMORPHONE [Suspect]
     Active Substance: HYDROMORPHONE
     Indication: NEURALGIA
     Dosage: 24?40 MG/DAY (160?280 MME ORAL MORPHINE)
     Route: 048
  2. LIDOCAINE. [Suspect]
     Active Substance: LIDOCAINE
     Indication: PHANTOM LIMB SYNDROME
  3. KETAMINE [Suspect]
     Active Substance: KETAMINE
     Dosage: 300?600 MG ORALLY PER DAY
     Route: 060
  4. GABAPENTIN. [Suspect]
     Active Substance: GABAPENTIN
     Indication: PHANTOM LIMB SYNDROME
  5. PREGABALIN. [Suspect]
     Active Substance: PREGABALIN
     Indication: PHANTOM LIMB SYNDROME
  6. MEXILETINE [Suspect]
     Active Substance: MEXILETINE
     Indication: NEURALGIA
     Route: 048
  7. EFFEXOR [Suspect]
     Active Substance: VENLAFAXINE HYDROCHLORIDE
     Indication: ANTIDEPRESSANT THERAPY
     Route: 065
  8. KETAMINE [Suspect]
     Active Substance: KETAMINE
     Indication: PHANTOM LIMB SYNDROME
     Dosage: SUBLINGUAL, ORAL 400?600 MG PER DAY
     Route: 060
  9. NORCO [Suspect]
     Active Substance: ACETAMINOPHEN\HYDROCODONE BITARTRATE
     Indication: NEURALGIA
     Route: 065
  10. CYMBALTA [Suspect]
     Active Substance: DULOXETINE HYDROCHLORIDE
     Indication: ANTIDEPRESSANT THERAPY
     Route: 065
  11. OXYCODONE [Suspect]
     Active Substance: OXYCODONE
     Indication: PHANTOM LIMB SYNDROME
  12. LIDOCAINE. [Suspect]
     Active Substance: LIDOCAINE
     Indication: NEURALGIA
     Route: 062
  13. ROPIVACAINE. [Suspect]
     Active Substance: ROPIVACAINE HYDROCHLORIDE
     Indication: LOCAL ANAESTHESIA
     Route: 065
  14. OXYCODONE [Suspect]
     Active Substance: OXYCODONE
     Indication: NEURALGIA
     Route: 065
  15. PREGABALIN. [Suspect]
     Active Substance: PREGABALIN
     Indication: NEURALGIA
     Route: 065
  16. MEXILETINE [Suspect]
     Active Substance: MEXILETINE
     Indication: PHANTOM LIMB SYNDROME
  17. SUBOXONE [Suspect]
     Active Substance: BUPRENORPHINE HYDROCHLORIDE\NALOXONE HYDROCHLORIDE
     Indication: NEURALGIA
     Dosage: TITRATED IT OVER A DAY TO 24?32 MG BUPRENORPHINE PER DAY; 2 MG BUPRENORPHINE/0.5 MG NALOXONE, WAI...
     Route: 060
  18. LIDOCAINE. [Suspect]
     Active Substance: LIDOCAINE
     Indication: NEURALGIA
     Route: 042
  19. LIDOCAINE. [Suspect]
     Active Substance: LIDOCAINE
     Indication: PHANTOM LIMB SYNDROME
  20. NORCO [Suspect]
     Active Substance: ACETAMINOPHEN\HYDROCODONE BITARTRATE
     Indication: PHANTOM LIMB SYNDROME
  21. HYDROMORPHONE [Suspect]
     Active Substance: HYDROMORPHONE
     Indication: PHANTOM LIMB SYNDROME
     Route: 042
  22. GABAPENTIN. [Suspect]
     Active Substance: GABAPENTIN
     Indication: NEURALGIA
     Dosage: 3600 MILLIGRAM DAILY; THREE TIMES A DAY
     Route: 048
  23. KETAMINE [Suspect]
     Active Substance: KETAMINE
     Indication: NEURALGIA
     Dosage: 0.5 MG/KG/HOUR FOR 5?7 DAYS
     Route: 042
  24. SUBOXONE [Suspect]
     Active Substance: BUPRENORPHINE HYDROCHLORIDE\NALOXONE HYDROCHLORIDE
     Indication: PHANTOM LIMB SYNDROME

REACTIONS (3)
  - Drug ineffective [Unknown]
  - Withdrawal syndrome [Recovered/Resolved]
  - Off label use [Unknown]
